FAERS Safety Report 4330413-8 (Version None)
Quarter: 2004Q1

REPORT INFORMATION
  Report Type: 
  Country: None (occurrence: None)
  Receive Date: 20040330
  Receipt Date: 20040317
  Transmission Date: 20041129
  Serious: Yes (Other)
  Sender: FDA-Public Use
  Company Number: 2003-06103

PATIENT
  Age: 57 Year
  Sex: Male

DRUGS (3)
  1. TENOFOVIR DF [Suspect]
     Indication: HIV INFECTION
     Dosage: 300 MG QD PO
     Route: 048
     Dates: start: 20021121, end: 20031205
  2. ABACAVIR/LAMIVUDINE [Suspect]
     Indication: HIV INFECTION
     Dates: start: 20021121, end: 20031205
  3. KALETRA [Suspect]
     Indication: HIV INFECTION
     Dosage: 400 MG BID PO
     Route: 048
     Dates: start: 20021121, end: 20031205

REACTIONS (1)
  - HYPERTRIGLYCERIDAEMIA [None]
